FAERS Safety Report 16389327 (Version 1)
Quarter: 2019Q2

REPORT INFORMATION
  Report Type: Spontaneous
  Country: CN (occurrence: CN)
  Receive Date: 20190604
  Receipt Date: 20190604
  Transmission Date: 20190711
  Serious: Yes (Other)
  Sender: FDA-Public Use
  Company Number: CN-VALIDUS PHARMACEUTICALS LLC-CN-2019VAL000258

PATIENT

DRUGS (13)
  1. CALCITRIOL. [Suspect]
     Active Substance: CALCITRIOL
     Indication: BLOOD CALCIUM DECREASED
  2. CALTRATE D                         /09279801/ [Concomitant]
     Indication: TUBULOINTERSTITIAL NEPHRITIS
     Dosage: UNK
     Route: 048
  3. CALCITRIOL. [Suspect]
     Active Substance: CALCITRIOL
     Indication: BLOOD PARATHYROID HORMONE DECREASED
  4. CALCITRIOL. [Suspect]
     Active Substance: CALCITRIOL
     Indication: HYPERPARATHYROIDISM SECONDARY
  5. LANTHANUM CARBONATE. [Concomitant]
     Active Substance: LANTHANUM CARBONATE
     Indication: HYPERPARATHYROIDISM SECONDARY
     Dosage: UNK
     Route: 065
  6. CALCITRIOL. [Suspect]
     Active Substance: CALCITRIOL
     Indication: BLOOD PHOSPHORUS DECREASED
  7. LANTHANUM CARBONATE. [Concomitant]
     Active Substance: LANTHANUM CARBONATE
     Indication: OFF LABEL USE
  8. CALCITRIOL. [Suspect]
     Active Substance: CALCITRIOL
     Indication: CHRONIC KIDNEY DISEASE
  9. CALCITRIOL. [Suspect]
     Active Substance: CALCITRIOL
     Indication: OFF LABEL USE
  10. CALTRATE D                         /09279801/ [Concomitant]
     Indication: OFF LABEL USE
  11. CALCITRIOL. [Suspect]
     Active Substance: CALCITRIOL
     Indication: TUBULOINTERSTITIAL NEPHRITIS
     Dosage: UNK
     Route: 048
  12. CALTRATE D                         /09279801/ [Concomitant]
     Indication: HYPERPARATHYROIDISM SECONDARY
  13. CALTRATE D                         /09279801/ [Concomitant]
     Indication: CHRONIC KIDNEY DISEASE

REACTIONS (3)
  - Seizure [Unknown]
  - Intentional product use issue [Unknown]
  - Off label use [Unknown]
